FAERS Safety Report 4262981-9 (Version None)
Quarter: 2004Q1

REPORT INFORMATION
  Report Type: 
  Country: None (occurrence: None)
  Receive Date: 20040102
  Receipt Date: 20040102
  Transmission Date: 20041129
  Serious: Yes (Other)
  Sender: FDA-Public Use
  Company Number: None

PATIENT
  Sex: Male
  Weight: 77.5 kg

DRUGS (2)
  1. OXANDROLONE [Suspect]
     Indication: CATABOLIC STATE
     Dosage: 5 MG PO QID
     Route: 048
  2. OXANDROLONE [Suspect]
     Indication: IMPAIRED HEALING
     Dosage: 5 MG PO QID
     Route: 048

REACTIONS (1)
  - BLOOD ALBUMIN DECREASED [None]
